FAERS Safety Report 24546345 (Version 1)
Quarter: 2024Q4

REPORT INFORMATION
  Report Type: Spontaneous
  Country: US (occurrence: US)
  Receive Date: 20241024
  Receipt Date: 20241024
  Transmission Date: 20250115
  Serious: Yes (Life-Threatening)
  Sender: QUVA PHARMA
  Company Number: US-QuVa Pharma-2163305

PATIENT
  Age: 25 Year
  Sex: Female
  Weight: 62.5 kg

DRUGS (1)
  1. OXYTOCIN\SODIUM CHLORIDE - HUMAN COMPOUNDED DRUG [Suspect]
     Active Substance: OXYTOCIN\SODIUM CHLORIDE
     Indication: Postpartum haemorrhage
     Dates: start: 20240823, end: 20240823

REACTIONS (1)
  - Postpartum haemorrhage [Recovered/Resolved]

NARRATIVE: CASE EVENT DATE: 20240823
